FAERS Safety Report 8619552-0 (Version None)
Quarter: 2012Q3

REPORT INFORMATION
  Report Type: 
  Country: None (occurrence: None)
  Receive Date: 20120824
  Receipt Date: 20120410
  Transmission Date: 20120928
  Serious: No
  Sender: FDA-Public Use
  Company Number: US-ASTRAZENECA-2012SE23404

PATIENT
  Age: 77 Year
  Sex: Male
  Weight: 78.5 kg

DRUGS (3)
  1. SYMBICORT [Suspect]
     Indication: CHRONIC OBSTRUCTIVE PULMONARY DISEASE
     Dosage: 160/4.5 MCG, 2 PUFFS TWICE DAILY
     Route: 055
     Dates: start: 20120301
  2. SPIRIVA [Concomitant]
  3. HEART DISEASE MEDICATIONS [Concomitant]
     Indication: CARDIAC DISORDER

REACTIONS (1)
  - DYSPNOEA EXERTIONAL [None]
